FAERS Safety Report 21151323 (Version 1)
Quarter: 2022Q3

REPORT INFORMATION
  Report Type: Spontaneous
  Country: SE (occurrence: SE)
  Receive Date: 20220730
  Receipt Date: 20220730
  Transmission Date: 20221026
  Serious: Yes (Other)
  Sender: FDA-Public Use
  Company Number: SE-JNJFOC-20220743147

PATIENT

DRUGS (1)
  1. IBRUTINIB [Suspect]
     Active Substance: IBRUTINIB
     Indication: Chronic lymphocytic leukaemia
     Route: 048

REACTIONS (11)
  - Hypogammaglobulinaemia [Unknown]
  - Atrial fibrillation [Unknown]
  - Neutropenia [Unknown]
  - Sepsis [Unknown]
  - Febrile neutropenia [Unknown]
  - Pneumonia [Unknown]
  - Haemorrhage [Recovered/Resolved]
  - Infection [Unknown]
  - Arthralgia [Unknown]
  - Onychoclasis [Recovered/Resolved]
  - Rash [Recovered/Resolved]
